FAERS Safety Report 22613758 (Version 1)
Quarter: 2023Q2

REPORT INFORMATION
  Report Type: Other
  Country: EE (occurrence: EE)
  Receive Date: 20230619
  Receipt Date: 20230619
  Transmission Date: 20230721
  Serious: Yes (Death)
  Sender: FDA-Public Use
  Company Number: EE-CELLTRION HEALTHCARE HUNGARY KFT-2023EE011441

PATIENT
  Age: 65 Year
  Sex: Female

DRUGS (2)
  1. RITUXIMAB [Suspect]
     Active Substance: RITUXIMAB
     Indication: Diffuse large B-cell lymphoma
     Dosage: UNK
     Route: 042
  2. RITUXIMAB [Suspect]
     Active Substance: RITUXIMAB
     Indication: Epstein-Barr virus infection

REACTIONS (3)
  - Drug effect less than expected [Fatal]
  - False negative investigation result [Fatal]
  - Treatment delayed [Fatal]
